FAERS Safety Report 20552219 (Version 1)
Quarter: 2022Q1

REPORT INFORMATION
  Report Type: Spontaneous
  Country: US (occurrence: US)
  Receive Date: 20220304
  Receipt Date: 20220304
  Transmission Date: 20220423
  Serious: Yes (Other)
  Sender: FDA-Public Use
  Company Number: US-GLAXOSMITHKLINE-US2022GSK038700

PATIENT
  Sex: Male

DRUGS (3)
  1. ZANTAC [Suspect]
     Active Substance: RANITIDINE HYDROCHLORIDE
     Indication: Gastrooesophageal reflux disease
     Dosage: UNKNOWN AT THIS TIME, 3-4 X PER WEEK THEN 2-3 PER WEEK
     Route: 065
     Dates: start: 199001, end: 201201
  2. ZANTAC [Suspect]
     Active Substance: RANITIDINE HYDROCHLORIDE
     Indication: Gastrooesophageal reflux disease
     Dosage: UNKNOWN AT THIS TIME, 3-4 X PER WEEK THEN 2-3 PER WEEK
     Route: 065
     Dates: start: 199001, end: 201201
  3. RANITIDINE HYDROCHLORIDE [Suspect]
     Active Substance: RANITIDINE HYDROCHLORIDE
     Indication: Gastrooesophageal reflux disease
     Dosage: OTHER, 2-3 X PER WEEK
     Route: 065
     Dates: start: 201201, end: 202110

REACTIONS (2)
  - Lung neoplasm malignant [Unknown]
  - Leukaemia [Unknown]
